FAERS Safety Report 8884598 (Version 2)
Quarter: 2012Q4

REPORT INFORMATION
  Report Type: 
  Country: US (occurrence: US)
  Receive Date: 20121102
  Receipt Date: 20121123
  Transmission Date: 20130627
  Serious: Yes (Hospitalization, Other)
  Sender: FDA-Public Use
  Company Number: US-PFIZER INC-2012273591

PATIENT
  Age: 55 Year
  Sex: Female
  Weight: 113 kg

DRUGS (10)
  1. NEURONTIN [Suspect]
     Indication: BIPOLAR I DISORDER
     Dosage: 1500 mg/day 600mg in morning and 900mg at night
     Route: 048
  2. FOLIC ACID [Concomitant]
     Dosage: 1 mg, 1x/day
  3. LOPRESSOR [Concomitant]
     Dosage: 50 mg, 2x/day
  4. METFORMIN [Concomitant]
     Dosage: 1000 mg, 2x/day
  5. LUNESTA [Concomitant]
     Dosage: 6 mg (two 3mg at once), 1x/day
  6. REMERON [Concomitant]
     Dosage: 45 mg, 1x/day
  7. SEROQUEL [Concomitant]
     Dosage: 700 mg, 1x/day, 100mg in morning and 600mg at night
  8. ATIVAN [Concomitant]
     Dosage: 3 mg, 1x/day, 1mg in morning and 2mg at night
  9. DIOVANE [Concomitant]
     Dosage: 320 mg, 1x/day
  10. LAMICTAL [Concomitant]
     Dosage: 200 mg, 1x/day

REACTIONS (2)
  - Lung neoplasm malignant [Unknown]
  - Off label use [Unknown]
